FAERS Safety Report 7769381-5 (Version None)
Quarter: 2011Q3

REPORT INFORMATION
  Report Type: 
  Country: None (occurrence: None)
  Receive Date: 20110922
  Receipt Date: 20110804
  Transmission Date: 20111222
  Serious: No
  Sender: FDA-Public Use
  Company Number: US-ASTRAZENECA-2011SE17894

PATIENT
  Age: 28 Year
  Sex: Male
  Weight: 79.4 kg

DRUGS (2)
  1. LAMICTAL [Concomitant]
     Indication: BIPOLAR DISORDER
  2. SEROQUEL XR [Suspect]
     Indication: BIPOLAR DISORDER
     Route: 048
     Dates: start: 20101201

REACTIONS (1)
  - NASOPHARYNGITIS [None]
